FAERS Safety Report 7978322-7 (Version None)
Quarter: 2011Q4

REPORT INFORMATION
  Report Type: 
  Country: None (occurrence: None)
  Receive Date: 20111214
  Receipt Date: 20111201
  Transmission Date: 20120403
  Serious: Yes (Other)
  Sender: FDA-Public Use
  Company Number: ES-UCBSA-031193

PATIENT
  Sex: Female

DRUGS (1)
  1. KEPPRA [Suspect]
     Dosage: DOSE: 500, TWICE DAILY, TOTAL DAILY DOSE: 1000
     Route: 048
     Dates: start: 20110201, end: 20110821

REACTIONS (1)
  - HYPONATRAEMIA [None]
